FAERS Safety Report 9531676 (Version 1)
Quarter: 2013Q3

REPORT INFORMATION
  Report Type: Spontaneous
  Country: GB (occurrence: GB)
  Receive Date: 20130918
  Receipt Date: 20130918
  Transmission Date: 20140515
  Serious: Yes (Other)
  Sender: FDA-Public Use
  Company Number: GB-B.I. PHARMACEUTICALS,INC./RIDGEFIELD-2013-BI-28773UK

PATIENT
  Age: 79 Year
  Sex: Female
  Weight: 79 kg

DRUGS (4)
  1. PRADAXA [Suspect]
     Dates: start: 20130820
  2. BEZAFIBRATE [Concomitant]
     Dates: start: 20130520
  3. BISOPROLOL [Concomitant]
     Dates: start: 20130520
  4. DIGOXIN [Concomitant]
     Dates: start: 20130520

REACTIONS (4)
  - Muscle spasms [Recovered/Resolved]
  - Abdominal pain upper [Recovered/Resolved]
  - Oedema peripheral [Unknown]
  - Nausea [Recovered/Resolved]
